FAERS Safety Report 7277645-7 (Version None)
Quarter: 2011Q1

REPORT INFORMATION
  Report Type: 
  Country: None (occurrence: None)
  Receive Date: 20110202
  Receipt Date: 20110202
  Transmission Date: 20110831
  Serious: Yes (Other)
  Sender: FDA-Public Use
  Company Number: None

PATIENT
  Age: 36 Year
  Sex: Female
  Weight: 40.8237 kg

DRUGS (1)
  1. AVELOX [Suspect]
     Indication: SINUSITIS
     Dosage: 400MG DAILY X 10 DAYS PO
     Route: 048
     Dates: start: 20110126, end: 20110126

REACTIONS (5)
  - DIZZINESS [None]
  - HEART RATE INCREASED [None]
  - DRY MOUTH [None]
  - NAUSEA [None]
  - ANXIETY [None]
